FAERS Safety Report 7694265-0 (Version None)
Quarter: 2011Q3

REPORT INFORMATION
  Report Type: 
  Country: None (occurrence: None)
  Receive Date: 20110819
  Receipt Date: 20110812
  Transmission Date: 20111222
  Serious: Yes (Hospitalization, Other)
  Sender: FDA-Public Use
  Company Number: IE-GLAXOSMITHKLINE-B0729931A

PATIENT
  Sex: Male

DRUGS (8)
  1. RABEPRAZOLE SODIUM [Concomitant]
     Indication: PEPTIC ULCER
     Dosage: 20MG PER DAY
  2. ATENOLOL [Concomitant]
     Indication: HYPERTENSION
     Dosage: 100MG PER DAY
  3. ACCURETIC [Concomitant]
     Indication: HYPERTENSION
  4. GLUCOPHAGE [Concomitant]
     Indication: TYPE 2 DIABETES MELLITUS
     Dosage: 500MG PER DAY
  5. COZAAR [Concomitant]
     Indication: HYPERTENSION
     Dosage: 50MG PER DAY
  6. LIPITOR [Concomitant]
     Indication: HYPERCHOLESTEROLAEMIA
     Dosage: 10MG PER DAY
  7. EXFORGE [Concomitant]
  8. COMBODART [Suspect]
     Indication: PROSTATISM
     Route: 048
     Dates: start: 20110413, end: 20110623

REACTIONS (6)
  - MOBILITY DECREASED [None]
  - PARKINSONISM [None]
  - GAIT DISTURBANCE [None]
  - MUSCULOSKELETAL STIFFNESS [None]
  - DEPRESSION [None]
  - FALL [None]
